FAERS Safety Report 5043414-1 (Version None)
Quarter: 2006Q2

REPORT INFORMATION
  Report Type: 
  Country: None (occurrence: None)
  Receive Date: 20060601
  Receipt Date: 20060116
  Transmission Date: 20061013
  Serious: No
  Sender: FDA-Public Use
  Company Number: 2006PV007151

PATIENT
  Age: 66 Year
  Sex: Female
  Weight: 106.1417 kg

DRUGS (2)
  1. BYETTA [Suspect]
     Indication: DIABETES MELLITUS NON-INSULIN-DEPENDENT
     Dosage: 5 MCG; BID; SC
     Route: 058
     Dates: start: 20051227
  2. ACTOPLUS MET [Concomitant]

REACTIONS (1)
  - EARLY SATIETY [None]
